FAERS Safety Report 9995991 (Version 1)
Quarter: 2014Q1

REPORT INFORMATION
  Report Type: Spontaneous
  Country: US (occurrence: None)
  Receive Date: 20140218
  Receipt Date: 20140218
  Transmission Date: 20141002
  Serious: No
  Sender: FDA-Public Use
  Company Number: 1000052266

PATIENT
  Age: 79 Year
  Sex: Female

DRUGS (12)
  1. VIIBRYD [Suspect]
     Indication: DEPRESSION
     Route: 048
     Dates: start: 201311, end: 201311
  2. VIIBRYD (VILAZODONE HYDROCHLORIDE) (40 MILLIGRAM, TABLETS) [Suspect]
     Indication: DEPRESSION
     Dosage: 40 MG (40 MG, 1 IN 1 D), ORAL
     Route: 048
     Dates: start: 201312, end: 20131206
  3. VIIBRYD (VILAZODONE HYDROCHLORIDE) (TABLETS) [Suspect]
     Indication: DEPRESSION
     Dosage: 30 MG (30 MG, 1 IN 1 D), ORAL
     Route: 048
     Dates: start: 20131207, end: 20131208
  4. ABILIFY (ARIPIRAZOLE) [Concomitant]
  5. BUPROPION (BUPROPION) (BUPROPION) [Concomitant]
  6. TRAZODONE (TRAZODONE) (TRAZODONE) [Concomitant]
  7. OXYBUTYNIN (OXYBUTYNIN) (OXYBUTYNIN) [Concomitant]
  8. LEVOTHYROXINE (LEVOTHYROXINE (SODIUM) (LEVOTHYROXINE SODIUM) [Concomitant]
  9. MVI (VITAMINS NOS) (VITAMINS NOS) [Concomitant]
  10. VIT B12 (CYANOCOBALAMIN) (CYANOCOBALAMIN)? [Concomitant]
  11. ASPIRIN (ACETYLSALICYLIC ACID) (ACETYLSALICYLIC ACID) [Concomitant]
  12. LOVASTATIN (LOVASTATIN) (LOVASTATIN) [Concomitant]

REACTIONS (1)
  - Diarrhoea [None]
